FAERS Safety Report 4404759-9 (Version None)
Quarter: 2004Q3

REPORT INFORMATION
  Report Type: 
  Country: None (occurrence: None)
  Receive Date: 20040720
  Receipt Date: 20040705
  Transmission Date: 20050211
  Serious: Yes (Death, Hospitalization)
  Sender: FDA-Public Use
  Company Number: CHNY2004DE00938

PATIENT
  Age: 64 Year
  Sex: Male

DRUGS (3)
  1. NICOTINELL TTS (NCH) (NICOTINE) TRANS-THERAPEUTIC-SYSTEM [Suspect]
     Indication: SMOKING CESSATION THERAPY
     Dosage: UNK, UNK; TRANSDERMAL
     Route: 062
     Dates: start: 20001201
  2. ADALAT [Concomitant]
  3. CAPOZIDE [Concomitant]

REACTIONS (4)
  - APALLIC SYNDROME [None]
  - BRAIN OEDEMA [None]
  - CARDIAC ARREST [None]
  - RESPIRATORY FAILURE [None]
